FAERS Safety Report 6490028-2 (Version None)
Quarter: 2009Q4

REPORT INFORMATION
  Report Type: 
  Country: None (occurrence: None)
  Receive Date: 20091210
  Receipt Date: 20091210
  Transmission Date: 20100525
  Serious: No
  Sender: FDA-Public Use
  Company Number: None

PATIENT
  Sex: Female

DRUGS (1)
  1. PAXIL [Suspect]
     Indication: DEPRESSION
     Dosage: 10 MG QD ORAL; 40 MG QD ORAL
     Route: 048
     Dates: start: 20080101

REACTIONS (1)
  - CYSTITIS [None]
